FAERS Safety Report 9320604 (Version 1)
Quarter: 2013Q2

REPORT INFORMATION
  Report Type: Spontaneous
  Country: GB (occurrence: GB)
  Receive Date: 20130531
  Receipt Date: 20130531
  Transmission Date: 20140414
  Serious: Yes (Disabling, Other)
  Sender: FDA-Public Use
  Company Number: GB-ROCHE-1230052

PATIENT
  Age: 55 Year
  Sex: Female
  Weight: 95.6 kg

DRUGS (8)
  1. RITUXIMAB [Suspect]
     Indication: RHEUMATOID ARTHRITIS
     Route: 042
     Dates: start: 200905, end: 20130214
  2. LANSOPRAZOLE [Concomitant]
     Route: 065
  3. LEFLUNOMIDE [Concomitant]
     Route: 048
  4. PREDNISOLONE [Concomitant]
     Route: 048
  5. RAMIPRIL [Concomitant]
     Route: 065
  6. RISEDRONATE [Concomitant]
     Route: 065
  7. SULFASALAZINE [Concomitant]
     Route: 048
  8. TRAMADOL [Concomitant]
     Route: 065

REACTIONS (3)
  - Rash [Recovered/Resolved]
  - Throat tightness [Recovered/Resolved]
  - Chest discomfort [Recovered/Resolved]
